FAERS Safety Report 23692103 (Version 1)
Quarter: 2024Q2

REPORT INFORMATION
  Report Type: Report from Study
  Country: US (occurrence: US)
  Receive Date: 20240401
  Receipt Date: 20240401
  Transmission Date: 20240716
  Serious: Yes (Hospitalization)
  Sender: FDA-Public Use
  Company Number: US-SAREPTA THERAPEUTICS INC.-SRP2024-004480

PATIENT
  Age: 16 Year
  Sex: Male

DRUGS (1)
  1. CASIMERSEN [Suspect]
     Active Substance: CASIMERSEN
     Indication: Product used for unknown indication
     Dosage: UNK

REACTIONS (2)
  - Vomiting [Unknown]
  - Somnolence [Unknown]

NARRATIVE: CASE EVENT DATE: 20240319
